FAERS Safety Report 7730625-7 (Version None)
Quarter: 2011Q3

REPORT INFORMATION
  Report Type: 
  Country: None (occurrence: None)
  Receive Date: 20110906
  Receipt Date: 20110831
  Transmission Date: 20111222
  Serious: Yes (Other)
  Sender: FDA-Public Use
  Company Number: BR-ABBOTT-11P-020-0851075-00

PATIENT
  Age: 32 Year
  Sex: Female

DRUGS (2)
  1. VALPROATE SODIUM [Suspect]
     Indication: EPILEPSY
     Dosage: GASTRO-RESISTANT TABLET
     Route: 048
  2. VALPROATE SODIUM [Suspect]
     Dosage: GASTRO-RESISTANT TABLET
     Route: 048
     Dates: start: 20110815

REACTIONS (2)
  - MENSTRUATION DELAYED [None]
  - CONVULSION [None]
